FAERS Safety Report 6144891-5 (Version None)
Quarter: 2009Q2

REPORT INFORMATION
  Report Type: 
  Country: None (occurrence: None)
  Receive Date: 20090402
  Receipt Date: 20090402
  Transmission Date: 20091009
  Serious: Yes (Other)
  Sender: FDA-Public Use
  Company Number: None

PATIENT
  Age: 60 Year
  Sex: Male
  Weight: 77.1115 kg

DRUGS (14)
  1. PIOGLITAZONE [Suspect]
     Indication: TYPE 2 DIABETES MELLITUS
     Dosage: 1 TABLET DAILY PO
     Route: 048
     Dates: start: 20060602, end: 20090327
  2. ASPIRIN [Concomitant]
  3. DIGOXIN [Concomitant]
  4. GLUCOPHAGE [Concomitant]
  5. LANTUS [Concomitant]
  6. METOPROLOL TARTRATE [Concomitant]
  7. PLAVIX [Concomitant]
  8. ZOCOR [Concomitant]
  9. LISINOPRIL [Concomitant]
  10. ULTRAM [Concomitant]
  11. NOVOLOG [Concomitant]
  12. PRILOSEC [Concomitant]
  13. ALBUTEROL [Concomitant]
  14. ZOLOFT [Concomitant]

REACTIONS (5)
  - BACK PAIN [None]
  - BLOOD AMYLASE INCREASED [None]
  - DECREASED APPETITE [None]
  - FATIGUE [None]
  - LIPASE INCREASED [None]
